FAERS Safety Report 14426552 (Version 3)
Quarter: 2023Q2

REPORT INFORMATION
  Report Type: Spontaneous
  Country: US (occurrence: None)
  Receive Date: 20180123
  Receipt Date: 20230511
  Transmission Date: 20230721
  Serious: No
  Sender: FDA-Public Use
  Company Number: US-ROCHE-2045884

PATIENT
  Sex: Male

DRUGS (1)
  1. OCREVUS [Suspect]
     Active Substance: OCRELIZUMAB
     Indication: Relapsing multiple sclerosis
     Dosage: 01-OCT-2022 START DATE
     Route: 042

REACTIONS (6)
  - Illness [Unknown]
  - Diarrhoea [Unknown]
  - Vomiting [Recovered/Resolved]
  - Contrast media allergy [Recovered/Resolved]
  - Sinus congestion [Recovered/Resolved]
  - Nausea [Recovered/Resolved]
